FAERS Safety Report 9643465 (Version 2)
Quarter: 2013Q4

REPORT INFORMATION
  Report Type: Report from Study
  Country: CA (occurrence: CA)
  Receive Date: 20131024
  Receipt Date: 20131031
  Transmission Date: 20140711
  Serious: Yes (Other)
  Sender: FDA-Public Use
  Company Number: CA-JNJFOC-20131011488

PATIENT
  Age: 39 Year
  Sex: Female
  Weight: 56 kg

DRUGS (2)
  1. REMICADE [Suspect]
     Indication: COLITIS ULCERATIVE
     Dosage: FOR 52 WEEKS
     Route: 042
     Dates: start: 20120919
  2. SALOFALK [Concomitant]
     Route: 048
     Dates: start: 20100801

REACTIONS (1)
  - Systemic lupus erythematosus [Not Recovered/Not Resolved]
